FAERS Safety Report 5027872-4 (Version None)
Quarter: 2006Q2

REPORT INFORMATION
  Report Type: 
  Country: None (occurrence: None)
  Receive Date: 20060616
  Receipt Date: 20060608
  Transmission Date: 20061013
  Serious: Yes (Hospitalization)
  Sender: FDA-Public Use
  Company Number: IT-ROCHE-451010

PATIENT
  Age: 67 Year
  Sex: Female

DRUGS (2)
  1. ROCEPHIN [Suspect]
     Indication: PNEUMONIA
     Dosage: FORM REPORTED AS VIAL UNK.
     Route: 042
     Dates: start: 20060427, end: 20060509
  2. AVELOX [Concomitant]
     Route: 048
     Dates: start: 20060429, end: 20060517

REACTIONS (1)
  - SKIN REACTION [None]
